FAERS Safety Report 9285745 (Version 1)
Quarter: 2013Q2

REPORT INFORMATION
  Report Type: Spontaneous
  Country: NZ (occurrence: None)
  Receive Date: 20130509
  Receipt Date: 20130509
  Transmission Date: 20140414
  Serious: Yes (Death)
  Sender: FDA-Public Use
  Company Number: NZ-011618

PATIENT
  Age: 40 Year
  Sex: Female

DRUGS (3)
  1. MENOTROPHIN [Suspect]
     Indication: PRODUCT USED FOR UNKNOWN INDICATION
  2. CHORIONIC GONADOTROPHIN [Suspect]
  3. BUSERELIN [Concomitant]

REACTIONS (5)
  - Cerebral infarction [None]
  - Cyst [None]
  - Ovarian hyperstimulation syndrome [None]
  - Pleural effusion [None]
  - Thrombosis [None]
